FAERS Safety Report 4341837-7 (Version None)
Quarter: 2004Q2

REPORT INFORMATION
  Report Type: 
  Country: None (occurrence: None)
  Receive Date: 20040415
  Receipt Date: 20040401
  Transmission Date: 20050107
  Serious: Yes (Death, Hospitalization)
  Sender: FDA-Public Use
  Company Number: NSADSS2002005202

PATIENT
  Age: 70 Year
  Sex: Female

DRUGS (3)
  1. REMICADE [Suspect]
     Indication: RHEUMATOID ARTHRITIS
     Dosage: SEE IMAGE
     Route: 041
     Dates: start: 20010420, end: 20010420
  2. REMICADE [Suspect]
     Indication: RHEUMATOID ARTHRITIS
     Dosage: SEE IMAGE
     Route: 041
     Dates: start: 20010918, end: 20010918
  3. METHOTREXATE [Suspect]
     Indication: RHEUMATOID ARTHRITIS
     Dosage: 7.5 MG, INTRAMUSCULAR
     Route: 030
     Dates: start: 19960501

REACTIONS (13)
  - CANDIDIASIS [None]
  - COGNITIVE DETERIORATION [None]
  - ENTEROBACTER SEPSIS [None]
  - FUNGUS SPUTUM TEST POSITIVE [None]
  - HYPOTENSION [None]
  - INTERSTITIAL LUNG DISEASE [None]
  - MARKEDLY REDUCED DIETARY INTAKE [None]
  - PLEURAL EFFUSION [None]
  - PNEUMONIA [None]
  - PULMONARY OEDEMA [None]
  - RENAL FAILURE ACUTE [None]
  - SEPTIC SHOCK [None]
  - URINARY TRACT INFECTION STAPHYLOCOCCAL [None]
